FAERS Safety Report 20290428 (Version 2)
Quarter: 2022Q1

REPORT INFORMATION
  Report Type: Report from Study
  Country: FR (occurrence: FR)
  Receive Date: 20220104
  Receipt Date: 20220206
  Transmission Date: 20220423
  Serious: Yes (Death, Other)
  Sender: FDA-Public Use
  Company Number: FR-NOVARTISPH-NVSC2021FR300695

PATIENT
  Sex: Female

DRUGS (1)
  1. CAPMATINIB [Suspect]
     Active Substance: CAPMATINIB
     Indication: Lung cancer metastatic
     Dosage: 2 DOSAGE FORM, QD (2 X 200 MG)
     Route: 048
     Dates: start: 20210827, end: 20210907

REACTIONS (3)
  - Lung cancer metastatic [Fatal]
  - Malignant neoplasm progression [Fatal]
  - General physical health deterioration [Unknown]

NARRATIVE: CASE EVENT DATE: 20210903
